FAERS Safety Report 11395490 (Version 1)
Quarter: 2015Q3

REPORT INFORMATION
  Report Type: Spontaneous
  Country: US (occurrence: US)
  Receive Date: 20150819
  Receipt Date: 20150819
  Transmission Date: 20151125
  Serious: No
  Sender: FDA-Public Use
  Company Number: US-ASTRAZENECA-2015SE77155

PATIENT
  Sex: Female
  Weight: 59 kg

DRUGS (3)
  1. CENTRUM SILVER VITAMIN [Concomitant]
  2. NEXIUM [Suspect]
     Active Substance: ESOMEPRAZOLE MAGNESIUM
     Indication: HIATUS HERNIA
     Route: 048
     Dates: start: 2005, end: 2013
  3. NEXIUM [Suspect]
     Active Substance: ESOMEPRAZOLE MAGNESIUM
     Indication: HIATUS HERNIA
     Route: 048
     Dates: start: 2013

REACTIONS (3)
  - Product use issue [Unknown]
  - Off label use [Not Recovered/Not Resolved]
  - Eructation [Recovered/Resolved]
